FAERS Safety Report 23637896 (Version 1)
Quarter: 2024Q1

REPORT INFORMATION
  Report Type: Spontaneous
  Country: IN (occurrence: IN)
  Receive Date: 20240315
  Receipt Date: 20240315
  Transmission Date: 20240410
  Serious: Yes (Other)
  Sender: FDA-Public Use
  Company Number: IN-002147023-NVSC2024IN049636

PATIENT

DRUGS (1)
  1. RUXOLITINIB [Suspect]
     Active Substance: RUXOLITINIB
     Indication: Product used for unknown indication
     Dosage: 5 MG (10MG MORNING AND 5MG EVENING)
     Route: 048
     Dates: start: 20231013

REACTIONS (6)
  - Bicytopenia [Unknown]
  - Muscular weakness [Unknown]
  - Product use issue [Unknown]
  - Hepatosplenomegaly [Unknown]
  - Thrombocytopenia [Unknown]
  - Tremor [Unknown]
